FAERS Safety Report 17680108 (Version 1)
Quarter: 2020Q2

REPORT INFORMATION
  Report Type: Spontaneous
  Country: US (occurrence: US)
  Receive Date: 20200416
  Receipt Date: 20200416
  Transmission Date: 20200714
  Serious: Yes (Hospitalization)
  Sender: FDA-Public Use
  Company Number: None

PATIENT
  Age: 61 Year
  Sex: Female

DRUGS (2)
  1. OXYCODONE [Concomitant]
     Active Substance: OXYCODONE
  2. PIQRAY [Suspect]
     Active Substance: ALPELISIB
     Route: 048

REACTIONS (3)
  - Hip fracture [None]
  - Pneumonia [None]
  - Therapy interrupted [None]

NARRATIVE: CASE EVENT DATE: 20200305
